FAERS Safety Report 6186559-5 (Version None)
Quarter: 2009Q2

REPORT INFORMATION
  Report Type: 
  Country: None (occurrence: None)
  Receive Date: 20090507
  Receipt Date: 20090507
  Transmission Date: 20091009
  Serious: Yes (Hospitalization, Disabling)
  Sender: FDA-Public Use
  Company Number: None

PATIENT
  Age: 67 Year
  Sex: Male
  Weight: 74 kg

DRUGS (3)
  1. DOCETAXEL [Suspect]
     Indication: PANCREATIC CARCINOMA
     Dosage: 76MG D1 -C=28D- IV
     Route: 042
     Dates: start: 20081215, end: 20090422
  2. . [Concomitant]
  3. GEMCITABINE [Concomitant]

REACTIONS (5)
  - ANAEMIA [None]
  - DEEP VEIN THROMBOSIS [None]
  - OEDEMA [None]
  - PNEUMONITIS [None]
  - TACHYCARDIA [None]
